FAERS Safety Report 7665358-9 (Version None)
Quarter: 2011Q3

REPORT INFORMATION
  Report Type: 
  Country: None (occurrence: None)
  Receive Date: 20110806
  Receipt Date: 20110412
  Transmission Date: 20111222
  Serious: No
  Sender: FDA-Public Use
  Company Number: US-ABBOTT-11P-163-0718895-00

PATIENT
  Sex: Male
  Weight: 104.42 kg

DRUGS (10)
  1. NIASPAN [Suspect]
     Indication: BLOOD TRIGLYCERIDES INCREASED
  2. CARVEDILOL [Concomitant]
     Indication: HYPERTENSION
  3. FISH OIL [Concomitant]
     Indication: PRODUCT USED FOR UNKNOWN INDICATION
  4. ASPIRIN [Concomitant]
     Indication: PROPHYLAXIS
  5. NIASPAN [Suspect]
     Indication: HIGH DENSITY LIPOPROTEIN DECREASED
     Dosage: EVERY NIGHT
     Dates: start: 20101201, end: 20110301
  6. NIASPAN [Suspect]
     Indication: HIGH DENSITY LIPOPROTEIN DECREASED
     Dosage: EVERY NIGHT
     Dates: start: 20110301
  7. NIASPAN [Suspect]
     Indication: BLOOD TRIGLYCERIDES INCREASED
  8. ASCORBIC ACID [Concomitant]
     Indication: VITAMIN SUPPLEMENTATION
  9. VITAMIN B COMPLEX CAP [Concomitant]
     Indication: VITAMIN SUPPLEMENTATION
  10. ASPIRIN [Concomitant]
     Indication: ADVERSE DRUG REACTION

REACTIONS (3)
  - PRURITUS [None]
  - RASH [None]
  - INCREASED TENDENCY TO BRUISE [None]
